FAERS Safety Report 18454915 (Version 7)
Quarter: 2021Q1

REPORT INFORMATION
  Report Type: Report from Study
  Country: JP (occurrence: JP)
  Receive Date: 20201102
  Receipt Date: 20210225
  Transmission Date: 20210419
  Serious: Yes (Death, Other)
  Sender: FDA-Public Use
  Company Number: JP-PFIZER INC-2020421743

PATIENT
  Age: 67 Year
  Sex: Female
  Weight: 51.9 kg

DRUGS (10)
  1. BRAFTOVI [Suspect]
     Active Substance: ENCORAFENIB
     Dosage: 300 MG, EVERYDAY
     Route: 048
     Dates: start: 20200515, end: 20200611
  2. MEKTOVI [Suspect]
     Active Substance: BINIMETINIB
     Dosage: 45 MG, EVERYDAY
     Route: 048
     Dates: start: 20200619, end: 20200727
  3. YERVOY [Suspect]
     Active Substance: IPILIMUMAB
     Indication: MALIGNANT MELANOMA
     Dosage: 3 MG/KG, EVERY 3 WEEKS
     Route: 041
     Dates: start: 20190723, end: 20190924
  4. MEKTOVI [Suspect]
     Active Substance: BINIMETINIB
     Indication: MALIGNANT MELANOMA
     Dosage: 90 MG, EVERYDAY
     Route: 048
     Dates: start: 20191122, end: 20200123
  5. MEKTOVI [Suspect]
     Active Substance: BINIMETINIB
     Dosage: 90 MG, EVERYDAY
     Route: 048
     Dates: start: 20200210, end: 20200211
  6. BRAFTOVI [Suspect]
     Active Substance: ENCORAFENIB
     Dosage: 450 MG, EVERYDAY
     Route: 048
     Dates: start: 20200210, end: 20200211
  7. BRAFTOVI [Suspect]
     Active Substance: ENCORAFENIB
     Dosage: 250 MG, EVERYDAY
     Route: 048
     Dates: start: 20200619, end: 20200727
  8. BRAFTOVI [Suspect]
     Active Substance: ENCORAFENIB
     Indication: MALIGNANT MELANOMA
     Dosage: 450 MG, EVERYDAY
     Route: 048
     Dates: start: 20191122, end: 20200123
  9. MEKTOVI [Suspect]
     Active Substance: BINIMETINIB
     Dosage: 60 MG, EVERYDAY
     Route: 048
     Dates: start: 20200515, end: 20200611
  10. OPDIVO [Suspect]
     Active Substance: NIVOLUMAB
     Indication: MALIGNANT MELANOMA
     Dosage: 80 MG, EVERY 3 WEEKS
     Route: 041
     Dates: start: 20190723, end: 20190924

REACTIONS (3)
  - Arthralgia [Recovered/Resolved]
  - Polyarthritis [Unknown]
  - Arthralgia [Unknown]

NARRATIVE: CASE EVENT DATE: 20200605
